FAERS Safety Report 14154096 (Version 3)
Quarter: 2018Q2

REPORT INFORMATION
  Report Type: Spontaneous
  Country: AR (occurrence: AR)
  Receive Date: 20171102
  Receipt Date: 20180612
  Transmission Date: 20180711
  Serious: Yes (Hospitalization, Other)
  Sender: FDA-Public Use
  Company Number: AR-PFIZER INC-2017471074

PATIENT
  Age: 77 Year
  Sex: Female

DRUGS (1)
  1. SUTENT [Suspect]
     Active Substance: SUNITINIB MALATE
     Indication: METASTATIC RENAL CELL CARCINOMA
     Dosage: 37.5 MG, DAILY CYCLIC (SCHEME 4/2)
     Dates: start: 20160906

REACTIONS (11)
  - Amnesia [Recovered/Resolved]
  - Pain in extremity [Recovering/Resolving]
  - Fear [Recovering/Resolving]
  - Fall [Recovering/Resolving]
  - Discomfort [Recovering/Resolving]
  - Seizure [Recovering/Resolving]
  - Injury [Recovering/Resolving]
  - Abnormal behaviour [Recovering/Resolving]
  - Fluid retention [Recovering/Resolving]
  - Altered state of consciousness [Recovering/Resolving]
  - Arthropathy [Recovering/Resolving]

NARRATIVE: CASE EVENT DATE: 201710
